FAERS Safety Report 21418429 (Version 1)
Quarter: 2022Q4

REPORT INFORMATION
  Report Type: Spontaneous
  Country: US (occurrence: None)
  Receive Date: 20221005
  Receipt Date: 20221005
  Transmission Date: 20230113
  Serious: Yes (unspecified)
  Sender: FDA-Public Use
  Company Number: None

PATIENT
  Age: 38 Year
  Sex: Male

DRUGS (1)
  1. SUBOXONE [Suspect]
     Active Substance: BUPRENORPHINE HYDROCHLORIDE\NALOXONE HYDROCHLORIDE
     Dosage: FREQUENCY : DAILY;?
     Route: 060

REACTIONS (7)
  - Withdrawal syndrome [None]
  - Yawning [None]
  - Nausea [None]
  - Abdominal discomfort [None]
  - Dizziness [None]
  - Visual impairment [None]
  - Product quality issue [None]

NARRATIVE: CASE EVENT DATE: 20221004
